FAERS Safety Report 7552288-6 (Version None)
Quarter: 2011Q2

REPORT INFORMATION
  Report Type: 
  Country: None (occurrence: None)
  Receive Date: 20110616
  Receipt Date: 20050406
  Transmission Date: 20111010
  Serious: Yes (Death, Other)
  Sender: FDA-Public Use
  Company Number: PHHO2004JP18371

PATIENT
  Sex: Female
  Weight: 57 kg

DRUGS (5)
  1. ALLOZYM [Concomitant]
     Dosage: 0.5 DF
     Route: 048
     Dates: start: 20010101, end: 20031201
  2. LIPITOR [Concomitant]
     Dosage: 10 MG
     Route: 048
     Dates: start: 20010101, end: 20031201
  3. DIOVAN [Suspect]
     Indication: HYPERTENSION
     Dosage: 80 MG, QD
     Route: 048
     Dates: start: 20030305, end: 20031201
  4. AMARYL [Concomitant]
     Dosage: 9 MG
     Dates: start: 20020607, end: 20031201
  5. RANITIDINE HYDROCHLORIDE [Concomitant]
     Dosage: 140 MG
     Route: 048
     Dates: start: 20020607, end: 20031201

REACTIONS (6)
  - EMBOLISM [None]
  - CEREBRAL HAEMORRHAGE [None]
  - HEMIPLEGIA [None]
  - SPEECH DISORDER [None]
  - ALTERED STATE OF CONSCIOUSNESS [None]
  - SEPSIS [None]
